FAERS Safety Report 9663941 (Version 2)
Quarter: 2013Q4

REPORT INFORMATION
  Report Type: Spontaneous
  Country: US (occurrence: US)
  Receive Date: 20131101
  Receipt Date: 20131120
  Transmission Date: 20140711
  Serious: Yes (Other)
  Sender: FDA-Public Use
  Company Number: US-PFIZER INC-2013311929

PATIENT
  Sex: Female
  Weight: 68.93 kg

DRUGS (2)
  1. CHANTIX [Suspect]
     Indication: SMOKING CESSATION THERAPY
     Dosage: STARTER PACK
     Route: 048
  2. CHANTIX [Suspect]
     Dosage: CONTINUATION PACK
     Route: 048

REACTIONS (1)
  - Chronic obstructive pulmonary disease [Unknown]
